FAERS Safety Report 9800307 (Version 1)
Quarter: 2014Q1

REPORT INFORMATION
  Report Type: Spontaneous
  Country: US (occurrence: US)
  Receive Date: 20140106
  Receipt Date: 20140106
  Transmission Date: 20141002
  Serious: Yes (Other)
  Sender: FDA-Public Use
  Company Number: US-GILEAD-2014-0091215

PATIENT
  Sex: Female

DRUGS (2)
  1. LETAIRIS [Suspect]
     Indication: PRODUCT USED FOR UNKNOWN INDICATION
     Dosage: 5 MG, QD
     Route: 065
     Dates: start: 20090418, end: 20090520
  2. TRACLEER                           /01587701/ [Concomitant]

REACTIONS (3)
  - Neoplasm malignant [Unknown]
  - Hospice care [Unknown]
  - Unevaluable event [Unknown]
